FAERS Safety Report 4896953-8 (Version None)
Quarter: 2006Q1

REPORT INFORMATION
  Report Type: 
  Country: None (occurrence: None)
  Receive Date: 20060127
  Receipt Date: 20060109
  Transmission Date: 20060701
  Serious: Yes (Hospitalization)
  Sender: FDA-Public Use
  Company Number: HU200511003388

PATIENT
  Age: 10 Year
  Sex: Male

DRUGS (3)
  1. SOMATROPIN (SOMATROPIN) [Suspect]
     Indication: GROWTH HORMONE DEFICIENCY
     Dosage: 2.5 IU, DAILY (1/D), SUBCUTANEOUS
     Route: 058
     Dates: start: 20011004, end: 20021103
  2. L-THYROXIN ^HENNING BERLIN^ (LEVOTHYROXINE SODIUM) [Concomitant]
  3. DESMOPRESSIN ACETATE [Concomitant]

REACTIONS (3)
  - ASTROCYTOMA, LOW GRADE [None]
  - HYPOAESTHESIA [None]
  - NEOPLASM PROGRESSION [None]
